FAERS Safety Report 7082954-0 (Version None)
Quarter: 2010Q4

REPORT INFORMATION
  Report Type: 
  Country: None (occurrence: None)
  Receive Date: 20101026
  Receipt Date: 20101013
  Transmission Date: 20110411
  Serious: Yes (Hospitalization)
  Sender: FDA-Public Use
  Company Number: DSA_44102_2010

PATIENT
  Age: 65 Year
  Sex: Female

DRUGS (1)
  1. DICLOFENAC SODIUM [Suspect]
     Indication: SERONEGATIVE ARTHRITIS
     Dosage: (75 MG BID ORAL)
     Route: 048

REACTIONS (4)
  - DIARRHOEA HAEMORRHAGIC [None]
  - GASTRITIS [None]
  - GASTROINTESTINAL DISORDER [None]
  - IRON DEFICIENCY ANAEMIA [None]
